FAERS Safety Report 21740117 (Version 1)
Quarter: 2022Q4

REPORT INFORMATION
  Report Type: Spontaneous
  Country: US (occurrence: US)
  Receive Date: 20221216
  Receipt Date: 20221216
  Transmission Date: 20230113
  Serious: No
  Sender: FDA-Public Use
  Company Number: US-REGENERON PHARMACEUTICALS, INC.-2022-106151

PATIENT
  Sex: Female

DRUGS (2)
  1. EYLEA [Suspect]
     Active Substance: AFLIBERCEPT
     Indication: Neovascular age-related macular degeneration
     Dosage: UNK, Q6W IN RIGHT EYE
     Dates: start: 2022, end: 2022
  2. EYLEA [Suspect]
     Active Substance: AFLIBERCEPT
     Dosage: UNK, Q5W IN RIGHT EYE
     Dates: start: 2022

REACTIONS (7)
  - Therapeutic response decreased [Unknown]
  - Tongue biting [Recovered/Resolved]
  - Lip swelling [Not Recovered/Not Resolved]
  - Swollen tongue [Recovered/Resolved]
  - Swelling face [Recovered/Resolved]
  - Oral mucosal erythema [Not Recovered/Not Resolved]
  - Tongue erythema [Not Recovered/Not Resolved]

NARRATIVE: CASE EVENT DATE: 20220101
